FAERS Safety Report 7578256-6 (Version None)
Quarter: 2011Q2

REPORT INFORMATION
  Report Type: 
  Country: None (occurrence: None)
  Receive Date: 20110628
  Receipt Date: 20110623
  Transmission Date: 20111010
  Serious: Yes (Hospitalization, Disabling)
  Sender: FDA-Public Use
  Company Number: US-JNJFOC-20110508552

PATIENT
  Sex: Male

DRUGS (7)
  1. CRESTOR [Concomitant]
  2. ASPIRIN [Concomitant]
  3. STELARA [Suspect]
     Indication: PSORIASIS
     Dosage: 5TH DOSE
     Route: 058
     Dates: start: 20110215
  4. PLAVIX [Concomitant]
  5. RAMIPRIL [Concomitant]
  6. METOPROLOL TARTRATE [Concomitant]
  7. METFORMIN HCL [Concomitant]

REACTIONS (2)
  - LOSS OF CONSCIOUSNESS [None]
  - SPINAL FRACTURE [None]
